FAERS Safety Report 12148059 (Version 3)
Quarter: 2016Q1

REPORT INFORMATION
  Report Type: Spontaneous
  Country: US (occurrence: US)
  Receive Date: 20160304
  Receipt Date: 20160331
  Transmission Date: 20160526
  Serious: No
  Sender: FDA-Public Use
  Company Number: US-PFIZER INC-2016102441

PATIENT
  Age: 66 Year
  Sex: Male
  Weight: 108.84 kg

DRUGS (9)
  1. LYRICA [Suspect]
     Active Substance: PREGABALIN
     Indication: PAIN
     Dosage: 100 MG, UNK (TAKES TWO 50MG CAPSULES TO EQUAL 100MG)
  2. LYRICA [Suspect]
     Active Substance: PREGABALIN
     Indication: GUILLAIN-BARRE SYNDROME
     Dosage: 50 MG, 3X/DAY
     Route: 048
     Dates: start: 201509
  3. LYRICA [Suspect]
     Active Substance: PREGABALIN
     Indication: PAIN IN EXTREMITY
     Dosage: 100 MG, 3X/DAY
  4. GABAPENTIN. [Suspect]
     Active Substance: GABAPENTIN
     Indication: PAIN
     Dosage: 100 MG, 4X/DAY
     Route: 048
  5. AMLODIPINE BESILATE [Suspect]
     Active Substance: AMLODIPINE BESYLATE
     Indication: HYPERTENSION
     Dosage: 10 MG, 1X/DAY
     Route: 048
     Dates: start: 20150906
  6. GABAPENTIN. [Suspect]
     Active Substance: GABAPENTIN
     Indication: GUILLAIN-BARRE SYNDROME
     Dosage: 100 MG, 3X/DAY
     Route: 048
     Dates: start: 201509
  7. METOPROLOL. [Suspect]
     Active Substance: METOPROLOL
     Dosage: 50 MG, 1X/DAY
  8. GABAPENTIN. [Suspect]
     Active Substance: GABAPENTIN
     Indication: PAIN IN EXTREMITY
     Dosage: 300 MG, 4X/DAY
  9. METOPROLOL. [Suspect]
     Active Substance: METOPROLOL
     Indication: HYPERTENSION
     Dosage: 100 MG, 1X/DAY
     Route: 048
     Dates: start: 20150906

REACTIONS (4)
  - Drug ineffective for unapproved indication [Unknown]
  - Burning sensation [Unknown]
  - Drug dose omission [Unknown]
  - Paraesthesia [Unknown]
